FAERS Safety Report 8925807 (Version 1)
Quarter: 2012Q4

REPORT INFORMATION
  Report Type: 
  Country: IE (occurrence: IE)
  Receive Date: 20121126
  Receipt Date: 20121126
  Transmission Date: 20130627
  Serious: Yes (Other)
  Sender: FDA-Public Use
  Company Number: PHFR2012IE004981

PATIENT
  Age: 51 Year
  Sex: Female

DRUGS (5)
  1. CLOZARIL [Suspect]
     Indication: SCHIZOPHRENIA
     Dosage: 550 mg, daily dose
     Route: 048
     Dates: start: 20060801
  2. CLOZARIL [Suspect]
     Dosage: 550 mg,
     Route: 048
  3. LEVETIRACETAM [Concomitant]
     Indication: CONVULSION
     Dosage: 500 mg, UNK
     Route: 048
     Dates: start: 20120807
  4. ZOPICLONE [Concomitant]
     Indication: SLEEP DISORDER
     Dosage: 7.5 mg, UNK
  5. ELTROXIN [Concomitant]
     Indication: HYPOTHYROIDISM
     Dosage: 50 mg, UNK

REACTIONS (9)
  - Feeling abnormal [Unknown]
  - Convulsion [Unknown]
  - Petit mal epilepsy [Recovered/Resolved]
  - Grand mal convulsion [Unknown]
  - Loss of consciousness [Unknown]
  - Blood pressure decreased [Unknown]
  - White blood cell count increased [Recovered/Resolved]
  - Neutrophil count increased [Recovered/Resolved]
  - Platelet count increased [Recovered/Resolved]
